FAERS Safety Report 13175755 (Version 9)
Quarter: 2020Q1

REPORT INFORMATION
  Report Type: Spontaneous
  Country: JP (occurrence: JP)
  Receive Date: 20170201
  Receipt Date: 20200316
  Transmission Date: 20200409
  Serious: Yes (Other)
  Sender: FDA-Public Use
  Company Number: JP-PFIZER INC-2017039376

PATIENT
  Age: 35 Year
  Sex: Female
  Weight: 46 kg

DRUGS (31)
  1. PROGRAF [Suspect]
     Active Substance: TACROLIMUS
     Dosage: UNK
  2. CELLCEPT [Suspect]
     Active Substance: MYCOPHENOLATE MOFETIL\MYCOPHENOLATE MOFETIL HYDROCHLORIDE
     Dosage: 500 MG, 2X/DAY
     Route: 048
     Dates: start: 20151228, end: 20160203
  3. CELLCEPT [Suspect]
     Active Substance: MYCOPHENOLATE MOFETIL\MYCOPHENOLATE MOFETIL HYDROCHLORIDE
     Dosage: 500 MG, 2X/DAY
     Route: 048
     Dates: start: 20161107, end: 20161123
  4. CELLCEPT [Suspect]
     Active Substance: MYCOPHENOLATE MOFETIL\MYCOPHENOLATE MOFETIL HYDROCHLORIDE
     Indication: PROPHYLAXIS AGAINST TRANSPLANT REJECTION
     Dosage: 250 MG, 2X/DAY
     Route: 048
     Dates: start: 20151015, end: 201510
  5. PREDONINE [Suspect]
     Active Substance: PREDNISOLONE
     Indication: PROPHYLAXIS AGAINST TRANSPLANT REJECTION
     Dosage: 2.5 MG, 1X/DAY
     Route: 048
     Dates: start: 20151015, end: 201510
  6. ALFACALCIDOL [Concomitant]
     Active Substance: ALFACALCIDOL
     Indication: PROPHYLAXIS
     Dosage: 0.5 UG, ONCE DAILY
     Route: 048
     Dates: start: 20151029
  7. PROGRAF [Suspect]
     Active Substance: TACROLIMUS
     Indication: PROPHYLAXIS AGAINST TRANSPLANT REJECTION
     Dosage: 0.5 MG, TWICE DAILY
     Route: 048
     Dates: start: 20151015, end: 201510
  8. CELLCEPT [Suspect]
     Active Substance: MYCOPHENOLATE MOFETIL\MYCOPHENOLATE MOFETIL HYDROCHLORIDE
     Dosage: 750 MG, 2X/DAY
     Route: 048
     Dates: start: 201510, end: 20151125
  9. CELLCEPT [Suspect]
     Active Substance: MYCOPHENOLATE MOFETIL\MYCOPHENOLATE MOFETIL HYDROCHLORIDE
     Dosage: 500 MG, 2X/DAY
     Route: 048
     Dates: start: 20151126, end: 20151218
  10. CELLCEPT [Suspect]
     Active Substance: MYCOPHENOLATE MOFETIL\MYCOPHENOLATE MOFETIL HYDROCHLORIDE
     Dosage: 250 MG, 2X/DAY
     Route: 048
     Dates: start: 20151218, end: 201512
  11. CELLCEPT [Suspect]
     Active Substance: MYCOPHENOLATE MOFETIL\MYCOPHENOLATE MOFETIL HYDROCHLORIDE
     Dosage: 500 MG, 2X/DAY
     Route: 048
     Dates: start: 20151221, end: 20151221
  12. CELLCEPT [Suspect]
     Active Substance: MYCOPHENOLATE MOFETIL\MYCOPHENOLATE MOFETIL HYDROCHLORIDE
     Dosage: 250 MG, 2X/DAY
     Route: 048
     Dates: start: 20151224, end: 20151224
  13. CELLCEPT [Suspect]
     Active Substance: MYCOPHENOLATE MOFETIL\MYCOPHENOLATE MOFETIL HYDROCHLORIDE
     Dosage: 500 MG, 2X/DAY
     Route: 048
     Dates: start: 20160208, end: 20161019
  14. CELLCEPT [Suspect]
     Active Substance: MYCOPHENOLATE MOFETIL\MYCOPHENOLATE MOFETIL HYDROCHLORIDE
     Dosage: 250 MG, 2X/DAY
     Route: 048
     Dates: start: 20161020, end: 20161106
  15. PREDONINE [Suspect]
     Active Substance: PREDNISOLONE
     Dosage: 20 MG, 1X/DAY
     Route: 048
     Dates: start: 201510, end: 201510
  16. PROGRAF [Suspect]
     Active Substance: TACROLIMUS
     Dosage: 3 MG, 2X/DAY
     Route: 048
     Dates: start: 20151030, end: 20151125
  17. PROGRAF [Suspect]
     Active Substance: TACROLIMUS
     Dosage: 0.5 MG, TWICE DAILY
     Route: 048
     Dates: start: 2016
  18. PREDONINE [Suspect]
     Active Substance: PREDNISOLONE
     Dosage: 5 MG, 1X/DAY
     Route: 048
     Dates: start: 20160104, end: 2016
  19. PROGRAF [Suspect]
     Active Substance: TACROLIMUS
     Indication: RENAL TRANSPLANT
     Dosage: 2 MG, 2X/DAY
     Route: 048
     Dates: start: 201510, end: 20151029
  20. PROGRAF [Suspect]
     Active Substance: TACROLIMUS
     Dosage: 2 MG, 2X/DAY
     Route: 048
     Dates: start: 20151126, end: 20160614
  21. CELLCEPT [Suspect]
     Active Substance: MYCOPHENOLATE MOFETIL\MYCOPHENOLATE MOFETIL HYDROCHLORIDE
     Dosage: 250 MG, 2X/DAY
     Route: 048
     Dates: start: 20160204, end: 20160207
  22. CELLCEPT [Suspect]
     Active Substance: MYCOPHENOLATE MOFETIL\MYCOPHENOLATE MOFETIL HYDROCHLORIDE
     Dosage: 500 MG, 2X/DAY
     Route: 048
     Dates: start: 20170116
  23. LANSOPRAZOLE. [Concomitant]
     Active Substance: LANSOPRAZOLE
     Indication: PROPHYLAXIS
     Dosage: 15 MG, 1X/DAY
     Route: 048
     Dates: start: 20151015
  24. MILMAG [Concomitant]
     Active Substance: MAGNESIUM HYDROXIDE
     Indication: PROPHYLAXIS
     Dosage: 350 MG, 1X/DAY
     Route: 048
     Dates: start: 20151015
  25. LIPITOR [Suspect]
     Active Substance: ATORVASTATIN CALCIUM
     Indication: PROPHYLAXIS
     Dosage: 5 MG, 1X/DAY
     Route: 048
     Dates: start: 20151029
  26. PROGRAF [Suspect]
     Active Substance: TACROLIMUS
     Dosage: 1 MG, 2X/DAY
     Route: 048
     Dates: start: 20160615, end: 2016
  27. CELLCEPT [Suspect]
     Active Substance: MYCOPHENOLATE MOFETIL\MYCOPHENOLATE MOFETIL HYDROCHLORIDE
     Dosage: 250 MG, 2X/DAY
     Route: 048
     Dates: start: 20161124, end: 20170115
  28. PREDONINE [Suspect]
     Active Substance: PREDNISOLONE
     Dosage: 15 MG, 1X/DAY
     Route: 048
     Dates: start: 201510, end: 201512
  29. CELLCEPT [Suspect]
     Active Substance: MYCOPHENOLATE MOFETIL\MYCOPHENOLATE MOFETIL HYDROCHLORIDE
     Dosage: 1000 MG, 2X/DAY
     Route: 048
     Dates: start: 201510, end: 201510
  30. PREDONINE [Suspect]
     Active Substance: PREDNISOLONE
     Dosage: 10 MG, 1X/DAY
     Route: 048
     Dates: start: 20151221, end: 20160103
  31. PREDONINE [Suspect]
     Active Substance: PREDNISOLONE
     Dosage: 2.5 MG, 1X/DAY
     Route: 048
     Dates: start: 2016

REACTIONS (5)
  - Polyomavirus-associated nephropathy [Recovering/Resolving]
  - Premature delivery [Unknown]
  - Off label use [Unknown]
  - Maternal exposure during pregnancy [Unknown]
  - Product use in unapproved indication [Unknown]

NARRATIVE: CASE EVENT DATE: 20151029
